FAERS Safety Report 8182156-0 (Version None)
Quarter: 2012Q1

REPORT INFORMATION
  Report Type: 
  Country: None (occurrence: None)
  Receive Date: 20120302
  Receipt Date: 20120220
  Transmission Date: 20120608
  Serious: Yes (Hospitalization, Other)
  Sender: FDA-Public Use
  Company Number: US-ELI_LILLY_AND_COMPANY-US201202006296

PATIENT
  Age: 48 Year
  Sex: Female

DRUGS (2)
  1. CYMBALTA [Suspect]
     Dosage: 60 MG, BID
  2. THYROID TAB [Concomitant]

REACTIONS (6)
  - CARDIAC DISORDER [None]
  - COAGULOPATHY [None]
  - BLADDER DISORDER [None]
  - POST PROCEDURAL HAEMORRHAGE [None]
  - HERNIA REPAIR [None]
  - BLOOD PRESSURE DECREASED [None]
